FAERS Safety Report 10077531 (Version 2)
Quarter: 2014Q2

REPORT INFORMATION
  Report Type: Report from Study
  Country: KR (occurrence: KR)
  Receive Date: 20140414
  Receipt Date: 20140423
  Transmission Date: 20141212
  Serious: Yes (Hospitalization)
  Sender: FDA-Public Use
  Company Number: KR-009507513-1404KOR006095

PATIENT
  Age: 60 Year
  Sex: Female

DRUGS (7)
  1. BOCEPREVIR [Suspect]
     Indication: HEPATITIS C
     Dosage: 4 CAPSULE, TID
     Route: 048
     Dates: start: 20140113
  2. INTERFERON ALFA-2B [Suspect]
     Indication: HEPATITIS C
     Dosage: TOTAL DAILY DOSE: 120 MCG QW
     Route: 058
     Dates: start: 20131214
  3. RIBAVIRIN [Suspect]
     Indication: HEPATITIS C
     Dosage: TOTAL DAILY DOSE: 1000 MG, QD
     Route: 048
     Dates: start: 20131214
  4. URSA TABLETS [Concomitant]
     Dosage: UNK
     Dates: start: 20060302
  5. LEGALON [Concomitant]
     Dosage: UNK
     Dates: start: 20060302
  6. ORODIPINE [Concomitant]
     Indication: HYPERTENSION
     Dosage: UNK
     Dates: start: 2004
  7. ASPIRIN PROTECT [Concomitant]
     Dosage: UNK
     Dates: start: 2004

REACTIONS (4)
  - Depression [Recovering/Resolving]
  - Nausea [Recovering/Resolving]
  - Vomiting [Recovering/Resolving]
  - Insomnia [Recovering/Resolving]
